FAERS Safety Report 8617331-1 (Version None)
Quarter: 2012Q3

REPORT INFORMATION
  Report Type: 
  Country: None (occurrence: None)
  Receive Date: 20120823
  Receipt Date: 20120807
  Transmission Date: 20120928
  Serious: Yes (Hospitalization, Other)
  Sender: FDA-Public Use
  Company Number: US-009507513-2011SP056413

PATIENT

DRUGS (4)
  1. NUVARING [Suspect]
     Dates: start: 20080201, end: 20100701
  2. NUVARING [Suspect]
     Indication: CONTRACEPTION
     Dates: start: 20090201, end: 20100701
  3. NUVARING [Suspect]
     Indication: MENSTRUAL CYCLE MANAGEMENT
     Dates: start: 20040130, end: 20091019
  4. NUVARING [Suspect]
     Dates: start: 20091203, end: 20100626

REACTIONS (6)
  - LIMB DISCOMFORT [None]
  - PULMONARY EMBOLISM [None]
  - DEEP VEIN THROMBOSIS [None]
  - BREAST ENLARGEMENT [None]
  - METAPLASIA [None]
  - BREAST FIBROSIS [None]
